FAERS Safety Report 16479825 (Version 14)
Quarter: 2021Q2

REPORT INFORMATION
  Report Type: Report from Study
  Country: AU (occurrence: AU)
  Receive Date: 20190626
  Receipt Date: 20210518
  Transmission Date: 20210716
  Serious: Yes (Hospitalization)
  Sender: FDA-Public Use
  Company Number: AU-EISAI MEDICAL RESEARCH-EC-2019-058232

PATIENT
  Age: 58 Year
  Sex: Female
  Weight: 76.9 kg

DRUGS (11)
  1. SALPRAZ [Concomitant]
     Dates: start: 201601
  2. LENVATINIB [Suspect]
     Active Substance: LENVATINIB
     Dosage: STARTING DOSE AT 20 MG, QD; FLUCTUATED DOSAGE
     Route: 048
     Dates: start: 20190624
  3. GLUCOSAMINE [Concomitant]
     Active Substance: GLUCOSAMINE
     Dates: start: 201905
  4. LENVATINIB [Suspect]
     Active Substance: LENVATINIB
     Indication: OVARIAN CANCER
     Route: 048
     Dates: start: 20190619, end: 20190620
  5. MAGNESIUM [Concomitant]
     Active Substance: MAGNESIUM
     Dates: start: 201905, end: 20190821
  6. XARELTO [Concomitant]
     Active Substance: RIVAROXABAN
     Dates: start: 201810, end: 20190621
  7. PEMBROLIZUMAB. [Suspect]
     Active Substance: PEMBROLIZUMAB
     Route: 041
     Dates: start: 20190711
  8. PEMBROLIZUMAB. [Suspect]
     Active Substance: PEMBROLIZUMAB
     Indication: OVARIAN CANCER
     Route: 041
     Dates: start: 20190619, end: 20190619
  9. PANADOL [Concomitant]
     Active Substance: ACETAMINOPHEN
     Dates: start: 201905
  10. ASMOL [Concomitant]
     Dates: start: 201905
  11. CALCIUM [Concomitant]
     Active Substance: CALCIUM
     Dates: start: 201905, end: 20190629

REACTIONS (1)
  - Headache [Recovered/Resolved]

NARRATIVE: CASE EVENT DATE: 20190620
